FAERS Safety Report 10897527 (Version 1)
Quarter: 2015Q1

REPORT INFORMATION
  Report Type: Spontaneous
  Country: US (occurrence: None)
  Receive Date: 20150302
  Receipt Date: 20150302
  Transmission Date: 20150721
  Serious: Yes (Hospitalization)
  Sender: FDA-Public Use
  Company Number: None

PATIENT
  Age: 68 Year
  Sex: Female
  Weight: 78.2 kg

DRUGS (3)
  1. CYCLOPHOSPHAMIDE. [Suspect]
     Active Substance: CYCLOPHOSPHAMIDE
     Dates: end: 20130706
  2. DOXORUBICIN HYDROCHLORIDE. [Suspect]
     Active Substance: DOXORUBICIN HYDROCHLORIDE
     Dates: end: 20130706
  3. TAXOL [Suspect]
     Active Substance: PACLITAXEL
     Dates: end: 20130924

REACTIONS (3)
  - Acute myocardial infarction [None]
  - Coronary artery stenosis [None]
  - Neuropathy peripheral [None]

NARRATIVE: CASE EVENT DATE: 20141126
